FAERS Safety Report 10398577 (Version 2)
Quarter: 2014Q3

REPORT INFORMATION
  Report Type: Report from Study
  Country: GR (occurrence: GR)
  Receive Date: 20140821
  Receipt Date: 20140821
  Transmission Date: 20150326
  Serious: Yes (Death)
  Sender: FDA-Public Use
  Company Number: PHHY2014GR035913

PATIENT
  Sex: Female

DRUGS (2)
  1. AROMASIN [Concomitant]
     Active Substance: EXEMESTANE
     Dosage: UNK UKN, UNK
  2. AFINITOR [Suspect]
     Active Substance: EVEROLIMUS
     Dosage: 10 MG, UNK

REACTIONS (18)
  - Depression [Unknown]
  - Abdominal pain upper [Unknown]
  - Pain in extremity [Unknown]
  - Bone pain [Unknown]
  - Tachycardia [Unknown]
  - Decreased appetite [Unknown]
  - Dyskinesia [Unknown]
  - Nausea [Unknown]
  - Oedema peripheral [Unknown]
  - Discomfort [Unknown]
  - Death [Fatal]
  - Movement disorder [Unknown]
  - Oral pain [Unknown]
  - Gingival pain [Unknown]
  - Dyspnoea [Unknown]
  - Asthenia [Unknown]
  - Vomiting [Unknown]
  - Fatigue [Unknown]
